FAERS Safety Report 5028397-2 (Version None)
Quarter: 2006Q2

REPORT INFORMATION
  Report Type: 
  Country: None (occurrence: None)
  Receive Date: 20060617
  Receipt Date: 20060609
  Transmission Date: 20061013
  Serious: Yes (Hospitalization)
  Sender: FDA-Public Use
  Company Number: US-JNJFOC-20060602794

PATIENT
  Sex: Female
  Weight: 82.1 kg

DRUGS (15)
  1. FENTANYL TRANSDERMAL SYSTEM [Suspect]
     Indication: PAIN
     Route: 062
  2. REGLAN [Concomitant]
     Indication: IMPAIRED GASTRIC EMPTYING
     Route: 048
  3. ZOFRAN [Concomitant]
     Indication: IMPAIRED GASTRIC EMPTYING
     Route: 048
  4. PROTONIX [Concomitant]
     Indication: GASTROOESOPHAGEAL REFLUX DISEASE
     Route: 048
  5. ZOLOFT [Concomitant]
     Indication: DEPRESSION
     Route: 048
  6. XANAX [Concomitant]
     Indication: DEPRESSION
     Route: 048
  7. DEMEROL [Concomitant]
     Indication: BREAKTHROUGH PAIN
     Dosage: 50 MG, 1-2 EVERY 3-4 HOURS, ORALLY
     Route: 048
  8. TOPROL-XL [Concomitant]
     Indication: CARDIAC DISORDER
     Route: 048
  9. TIGAN [Concomitant]
     Indication: VOMITING
     Route: 054
  10. TIGAN [Concomitant]
     Indication: NAUSEA
     Route: 054
  11. HUMALOG [Concomitant]
     Indication: DIABETES MELLITUS
     Dosage: UNITS, SLIDING SCALE, SUBCUTANEOUS
     Route: 058
  12. LANTUS [Concomitant]
     Indication: DIABETES MELLITUS
     Dosage: 39 UNITS AT LUNCHTIME, SUBCUTANEOUS
     Route: 058
  13. TRIVORA-21 [Concomitant]
     Route: 048
  14. TRIVORA-21 [Concomitant]
     Indication: CONTRACEPTION
     Route: 048
  15. ZELNORM [Concomitant]
     Indication: IRRITABLE BOWEL SYNDROME
     Route: 048

REACTIONS (9)
  - APPLICATION SITE EXCORIATION [None]
  - APPLICATION SITE INFECTION [None]
  - BODY TEMPERATURE INCREASED [None]
  - DEHYDRATION [None]
  - IMPAIRED GASTRIC EMPTYING [None]
  - INSOMNIA [None]
  - KETONURIA [None]
  - ORGAN FAILURE [None]
  - PNEUMONIA ASPIRATION [None]
